FAERS Safety Report 6283480-9 (Version None)
Quarter: 2009Q3

REPORT INFORMATION
  Report Type: 
  Country: None (occurrence: None)
  Receive Date: 20090724
  Receipt Date: 20090706
  Transmission Date: 20100115
  Serious: No
  Sender: FDA-Public Use
  Company Number: US-ALEXION-A200900293

PATIENT
  Sex: Male

DRUGS (9)
  1. SOLIRIS [Suspect]
     Indication: PAROXYSMAL NOCTURNAL HAEMOGLOBINURIA
     Dosage: 900 MG, Q2W
     Route: 042
  2. PREDNISONE TAB [Concomitant]
     Dosage: 10 MG, QD
     Route: 048
  3. COUMADIN [Concomitant]
     Dosage: 7.5 MG, QD
     Route: 048
  4. PROCARDIA [Concomitant]
     Dosage: 30 MG, QD
     Route: 048
  5. XANAX [Concomitant]
     Dosage: UNK
     Route: 048
  6. LASIX [Concomitant]
     Dosage: 40 MG, QD
     Route: 048
  7. POTASSIUM CHLORIDE [Concomitant]
     Dosage: UNK
     Route: 048
  8. ZOMETA [Concomitant]
     Indication: BONE PAIN
     Dosage: Q4W
     Route: 042
  9. NEPHRO-VITE                        /02375601/ [Concomitant]
     Indication: VITAMIN SUPPLEMENTATION
     Dosage: UNK
     Route: 048

REACTIONS (2)
  - BACK PAIN [None]
  - FATIGUE [None]
